FAERS Safety Report 16967978 (Version 1)
Quarter: 2019Q4

REPORT INFORMATION
  Report Type: Spontaneous
  Country: GB (occurrence: GB)
  Receive Date: 20191028
  Receipt Date: 20191028
  Transmission Date: 20200122
  Serious: Yes (Other)
  Sender: FDA-Public Use
  Company Number: NVSC2019GB015109

PATIENT
  Age: 44 Year
  Sex: Female

DRUGS (7)
  1. PREDNISOLONE. [Suspect]
     Active Substance: PREDNISOLONE
     Indication: ARTHRITIS
  2. METHOTREXATE. [Concomitant]
     Active Substance: METHOTREXATE
     Indication: SYSTEMIC LUPUS ERYTHEMATOSUS
     Dosage: UNK
     Route: 065
  3. METHOTREXATE. [Concomitant]
     Active Substance: METHOTREXATE
     Indication: ARTHRITIS
  4. TERBINAFINE. [Suspect]
     Active Substance: TERBINAFINE
     Indication: RASH PRURITIC
     Dosage: UNK
     Route: 048
  5. TERBINAFINE. [Suspect]
     Active Substance: TERBINAFINE
     Indication: SKIN EXFOLIATION
     Dosage: UNK
     Route: 061
  6. TERBINAFINE. [Suspect]
     Active Substance: TERBINAFINE
     Indication: SKIN LESION
  7. PREDNISOLONE. [Suspect]
     Active Substance: PREDNISOLONE
     Indication: SYSTEMIC LUPUS ERYTHEMATOSUS
     Dosage: UNK
     Route: 065

REACTIONS (8)
  - Pathogen resistance [Unknown]
  - Dermatophytosis [Unknown]
  - Body tinea [Unknown]
  - Rash pruritic [Unknown]
  - Skin lesion [Unknown]
  - Skin exfoliation [Unknown]
  - Drug ineffective [Unknown]
  - Drug resistance [Unknown]

NARRATIVE: CASE EVENT DATE: 2018
